FAERS Safety Report 9844862 (Version 1)
Quarter: 2014Q1

REPORT INFORMATION
  Report Type: Spontaneous
  Country: DE (occurrence: None)
  Receive Date: 20140122
  Receipt Date: 20140122
  Transmission Date: 20141002
  Serious: Yes (Other)
  Sender: FDA-Public Use
  Company Number: AUR-APL-2014-00367

PATIENT
  Age: 74 Year
  Sex: Female

DRUGS (2)
  1. PAROXETINE [Suspect]
     Indication: PRODUCT USED FOR UNKNOWN INDICATION
  2. NEBIVOLOL [Suspect]
     Indication: PRODUCT USED FOR UNKNOWN INDICATION

REACTIONS (7)
  - Bradyarrhythmia [None]
  - Dizziness [None]
  - Visual impairment [None]
  - Fall [None]
  - Contusion [None]
  - Metabolic disorder [None]
  - Drug level increased [None]
